FAERS Safety Report 14904280 (Version 4)
Quarter: 2018Q2

REPORT INFORMATION
  Report Type: Report from Study
  Country: None (occurrence: CH)
  Receive Date: 20180516
  Receipt Date: 20180608
  Transmission Date: 20180711
  Serious: Yes (Hospitalization)
  Sender: FDA-Public Use
  Company Number: CH-ABBVIE-18K-151-2357221-00

PATIENT
  Sex: Male

DRUGS (4)
  1. DUODOPA [Suspect]
     Active Substance: CARBIDOPA\LEVODOPA
     Indication: PARKINSON^S DISEASE
     Route: 050
     Dates: start: 20130618, end: 20150528
  2. DUODOPA [Suspect]
     Active Substance: CARBIDOPA\LEVODOPA
     Dosage: MORNING DOSE 4.2ML, CONTINUOUS RATE DAY 3.8ML/H AND AT NIGHT  2.1ML/H EXTRA DOSE 0.5ML
     Route: 050
     Dates: start: 20150528, end: 20161116
  3. DUODOPA [Suspect]
     Active Substance: CARBIDOPA\LEVODOPA
     Dosage: MD 4.2ML, CRD 3.6ML/H AND AT NIGHT 2.1ML/H; ED 0.5ML, 1 CASSETTE PER 24 HR
     Route: 050
     Dates: start: 20161116, end: 201805
  4. DUODOPA [Suspect]
     Active Substance: CARBIDOPA\LEVODOPA
     Dosage: MD 4.2ML, CONTINUOUS RATE DAY 3.4ML/H, CONTINUOUS RATE NIGHT 2.1ML/H, ED 0.5ML
     Route: 050
     Dates: start: 201805

REACTIONS (5)
  - Fall [Unknown]
  - Device breakage [Recovered/Resolved]
  - Head injury [Unknown]
  - Disorientation [Unknown]
  - Device alarm issue [Recovered/Resolved]

NARRATIVE: CASE EVENT DATE: 2018
